FAERS Safety Report 8709797 (Version 4)
Quarter: 2013Q1

REPORT INFORMATION
  Report Type: Report from Study
  Country: US (occurrence: US)
  Receive Date: 20120806
  Receipt Date: 20130220
  Transmission Date: 20140127
  Serious: Yes (Hospitalization, Other)
  Sender: FDA-Public Use
  Company Number: US-PFIZER INC-2012189300

PATIENT
  Age: 59 Year
  Sex: Male

DRUGS (26)
  1. SUNITINIB MALATE [Suspect]
     Indication: METASTATIC RENAL CELL CARCINOMA
     Dosage: UNK
     Dates: start: 20120202
  2. CYCLOPHOSPHAMIDE [Suspect]
     Dosage: UNK
     Dates: start: 20120323
  3. IMA901 [Suspect]
     Dosage: UNK
     Dates: start: 20120326
  4. GRANULOCYTE MACROPHAGE COLONY STIM FACTOR [Suspect]
     Dosage: UNK
     Dates: start: 20120326
  5. MAGNESIUM [Concomitant]
     Indication: SUPPLEMENTATION THERAPY
  6. VITAMIN D [Concomitant]
     Indication: SUPPLEMENTATION THERAPY
  7. ASPIRIN [Concomitant]
     Indication: CARDIOVASCULAR EVENT PROPHYLAXIS
  8. GLUCOPHAGE [Concomitant]
     Indication: TYPE 2 DIABETES MELLITUS
  9. GLIMEPIRIDE [Concomitant]
     Indication: TYPE 2 DIABETES MELLITUS
  10. LISINOPRIL [Concomitant]
     Indication: HYPERTENSION
  11. SIMVASTATIN [Concomitant]
     Indication: HYPERCHOLESTEROLAEMIA
  12. ATENOLOL [Concomitant]
     Indication: HYPERTENSION
  13. FORADIL INHALER [Concomitant]
     Indication: ASTHMA
  14. CLARITIN [Concomitant]
     Indication: NASAL CONGESTION
     Dosage: UNK
  15. CLARITIN [Concomitant]
     Indication: SEASONAL ALLERGY
  16. NAPROXEN [Concomitant]
     Indication: ARTHRALGIA
     Dosage: UNK
  17. NAPROXEN [Concomitant]
     Indication: PAIN
  18. OMEPRAZOLE [Concomitant]
     Indication: GASTROOESOPHAGEAL REFLUX DISEASE
  19. HYDROCHLOROTHIAZIDE [Concomitant]
     Indication: HYPERTENSION
  20. AMLODIPINE [Concomitant]
     Indication: HYPERTENSION
  21. NYSTATIN [Concomitant]
     Indication: RASH
  22. HYDROCORTISONE ACETATE [Concomitant]
     Indication: HAEMORRHOIDS
  23. IBUPROFEN [Concomitant]
     Indication: ARTHRALGIA
     Dosage: UNK
  24. COMPAZINE [Concomitant]
     Indication: NAUSEA
  25. LASIX [Concomitant]
     Indication: HYPERTENSION
  26. BETAMETHASONE DIPROPIONATE/CLOTRIMAZOLE [Concomitant]
     Indication: PROPHYLAXIS

REACTIONS (1)
  - Respiratory failure [Recovered/Resolved]
